FAERS Safety Report 23180004 (Version 4)
Quarter: 2025Q1

REPORT INFORMATION
  Report Type: Report from Study
  Country: US (occurrence: US)
  Receive Date: 20231114
  Receipt Date: 20250225
  Transmission Date: 20250409
  Serious: Yes (Hospitalization)
  Sender: TAKEDA
  Company Number: US-TAKEDA-2023TUS108725

PATIENT
  Sex: Female
  Weight: 44 kg

DRUGS (17)
  1. HUMAN IMMUNOGLOBULIN G [Suspect]
     Active Substance: HUMAN IMMUNOGLOBULIN G
     Indication: Immunodeficiency common variable
     Dosage: 5 GRAM, 1/WEEK
     Dates: start: 20231009
  2. ACETAMINOPHEN [Concomitant]
     Active Substance: ACETAMINOPHEN
  3. EPINEPHRINE [Concomitant]
     Active Substance: EPINEPHRINE
  4. ADDERALL [Concomitant]
     Active Substance: AMPHETAMINE ASPARTATE\AMPHETAMINE SULFATE\DEXTROAMPHETAMINE SACCHARATE\DEXTROAMPHETAMINE SULFATE
  5. ZONEGRAN [Concomitant]
     Active Substance: ZONISAMIDE
  6. PROAIR RESPICLICK [Concomitant]
     Active Substance: ALBUTEROL SULFATE
  7. CYCLOSPORINE [Concomitant]
     Active Substance: CYCLOSPORINE
  8. NIZORAL A-D [Concomitant]
     Active Substance: KETOCONAZOLE
  9. MONTELUKAST SODIUM [Concomitant]
     Active Substance: MONTELUKAST SODIUM
  10. VENTOLIN HFA [Concomitant]
     Active Substance: ALBUTEROL SULFATE
  11. DIPHENHYDRAMINE HYDROCHLORIDE [Concomitant]
     Active Substance: DIPHENHYDRAMINE HYDROCHLORIDE
  12. Lmx [Concomitant]
  13. BUTALBITAL, ACETAMINOPHEN, AND CAFFEINE [Concomitant]
     Active Substance: ACETAMINOPHEN\BUTALBITAL\CAFFEINE
  14. FERROUS SULFATE [Concomitant]
     Active Substance: FERROUS SULFATE
  15. ONDANSETRON HYDROCHLORIDE [Concomitant]
     Active Substance: ONDANSETRON HYDROCHLORIDE
  16. LYRICA [Concomitant]
     Active Substance: PREGABALIN
  17. COMPAZINE [Concomitant]
     Active Substance: PROCHLORPERAZINE MALEATE

REACTIONS (8)
  - Hypersensitivity [Unknown]
  - Urinary tract infection [Unknown]
  - Product dose omission issue [Unknown]
  - Insurance issue [Unknown]
  - Product use issue [Unknown]
  - Illness [Unknown]
  - Muscle spasms [Unknown]
  - Back pain [Unknown]
